FAERS Safety Report 8221502-6 (Version None)
Quarter: 2012Q1

REPORT INFORMATION
  Report Type: 
  Country: None (occurrence: None)
  Receive Date: 20120320
  Receipt Date: 20120312
  Transmission Date: 20120608
  Serious: Yes (Hospitalization, Other)
  Sender: FDA-Public Use
  Company Number: PHHY2012ES021486

PATIENT
  Age: 35 Year
  Sex: Male

DRUGS (2)
  1. ENALAPRIL MALEATE AND HYDROCHLOROTHIAZIDE [Suspect]
     Indication: HYPERTENSION
     Dosage: 20/12.5 MG, QD
     Dates: start: 20110613, end: 20110618
  2. ENALAPRIL MALEATE [Suspect]
     Indication: HYPERTENSION
     Dosage: 20 MG, QD
     Dates: start: 20101220

REACTIONS (5)
  - PANCREATIC PSEUDOCYST [None]
  - ABDOMINAL PAIN [None]
  - PANCREATITIS ACUTE [None]
  - VOMITING [None]
  - DIARRHOEA HAEMORRHAGIC [None]
